FAERS Safety Report 18349552 (Version 3)
Quarter: 2020Q4

REPORT INFORMATION
  Report Type: Spontaneous
  Country: US (occurrence: US)
  Receive Date: 20201006
  Receipt Date: 20201028
  Transmission Date: 20210114
  Serious: No
  Sender: FDA-Public Use
  Company Number: US-PFIZER INC-2020383887

PATIENT
  Age: 59 Year
  Sex: Female

DRUGS (1)
  1. EUCRISA [Suspect]
     Active Substance: CRISABOROLE
     Dosage: UNK, 2X/DAY (APPLY TO AFFECTED AREA ON FACE)

REACTIONS (4)
  - Dermatitis contact [Unknown]
  - Malaise [Unknown]
  - Weight decreased [Unknown]
  - Insomnia [Unknown]
